FAERS Safety Report 8550090-X (Version None)
Quarter: 2012Q3

REPORT INFORMATION
  Report Type: 
  Country: None (occurrence: None)
  Receive Date: 20120730
  Receipt Date: 20120719
  Transmission Date: 20120928
  Serious: Yes (Other)
  Sender: FDA-Public Use
  Company Number: US-ROCHE-787504

PATIENT
  Sex: Male

DRUGS (1)
  1. ACCUTANE [Suspect]
     Indication: PRODUCT USED FOR UNKNOWN INDICATION
     Route: 065
     Dates: start: 19891118, end: 19920601

REACTIONS (5)
  - DIVERTICULITIS [None]
  - INJURY [None]
  - ANXIETY [None]
  - PELVIC ABSCESS [None]
  - LIP DRY [None]
